FAERS Safety Report 8483387-2 (Version None)
Quarter: 2012Q3

REPORT INFORMATION
  Report Type: 
  Country: None (occurrence: None)
  Receive Date: 20120702
  Receipt Date: 20120628
  Transmission Date: 20120928
  Serious: Yes (Death)
  Sender: FDA-Public Use
  Company Number: US-JNJFOC-20120307970

PATIENT
  Sex: Male
  Weight: 84.82 kg

DRUGS (9)
  1. E VITAMIN [Concomitant]
     Dates: start: 20120307, end: 20120309
  2. HEPARIN [Concomitant]
  3. HYDROCHLOROTHIAZIDE [Concomitant]
     Indication: HYPERTENSION
     Dates: start: 20120307, end: 20120309
  4. SIMVASTATIN [Concomitant]
     Dates: start: 20120307, end: 20120309
  5. ASPIRIN [Concomitant]
     Dates: start: 20120307, end: 20120309
  6. POTASSIUM [Concomitant]
     Indication: BLOOD PRESSURE INCREASED
     Dates: start: 20120307, end: 20120309
  7. PLAVIX [Concomitant]
     Indication: CORONARY ARTERIAL STENT INSERTION
     Dates: start: 20120307, end: 20120309
  8. XARELTO [Suspect]
     Indication: THROMBOSIS PROPHYLAXIS
     Route: 048
     Dates: start: 20120307, end: 20120309
  9. MULTIPLE VITAMINS [Concomitant]
     Dates: start: 20120307, end: 20120309

REACTIONS (1)
  - PULMONARY EMBOLISM [None]
